FAERS Safety Report 5911929-7 (Version None)
Quarter: 2008Q4

REPORT INFORMATION
  Report Type: 
  Country: None (occurrence: None)
  Receive Date: 20081003
  Receipt Date: 20080926
  Transmission Date: 20090506
  Serious: Yes (Life-Threatening)
  Sender: FDA-Public Use
  Company Number: GXKR2008DE09405

PATIENT
  Age: 79 Year
  Sex: Male
  Weight: 74 kg

DRUGS (1)
  1. COTRIMHEXAL FORTE (NGX) (SULFAMETHOXAZOLE, TRIMETHOPRIM) UNKNOWN [Suspect]
     Indication: URINARY TRACT INFECTION
     Dosage: 2 DF, BID, ORAL
     Route: 048
     Dates: start: 20080623, end: 20080624

REACTIONS (1)
  - HYPOGLYCAEMIC UNCONSCIOUSNESS [None]
